FAERS Safety Report 7482615-X (Version None)
Quarter: 2011Q2

REPORT INFORMATION
  Report Type: 
  Country: None (occurrence: None)
  Receive Date: 20110516
  Receipt Date: 20110504
  Transmission Date: 20111010
  Serious: Yes (Other)
  Sender: FDA-Public Use
  Company Number: US-ELI_LILLY_AND_COMPANY-US201105002294

PATIENT
  Sex: Female

DRUGS (4)
  1. HUMULIN 70/30 [Suspect]
     Dosage: UNK, OTHER
     Dates: start: 20070101, end: 20110503
  2. LANTUS [Concomitant]
     Dosage: UNK
  3. HUMALOG [Suspect]
     Indication: TYPE 1 DIABETES MELLITUS
     Dosage: UNK, OTHER
     Dates: start: 20110503
  4. HUMULIN 70/30 [Suspect]
     Indication: TYPE 1 DIABETES MELLITUS
     Dosage: UNK, OTHER
     Dates: start: 20070101, end: 20110503

REACTIONS (10)
  - STRESS [None]
  - PALLOR [None]
  - BLOOD GLUCOSE INCREASED [None]
  - NODULE [None]
  - THYROID DISORDER [None]
  - THYROID CANCER [None]
  - DYSGEUSIA [None]
  - FEELING ABNORMAL [None]
  - BLOOD GLUCOSE DECREASED [None]
  - BLOOD GLUCOSE FLUCTUATION [None]
